FAERS Safety Report 5629498-8 (Version None)
Quarter: 2008Q1

REPORT INFORMATION
  Report Type: 
  Country: None (occurrence: None)
  Receive Date: 20080215
  Receipt Date: 20080215
  Transmission Date: 20080703
  Serious: Yes (Other)
  Sender: FDA-Public Use
  Company Number: None

PATIENT
  Sex: Male
  Weight: 52.5 kg

DRUGS (2)
  1. FOCALIN [Suspect]
     Indication: ATTENTION DEFICIT/HYPERACTIVITY DISORDER
     Dosage: 7AM + 11 AM
  2. FOCALIN [Suspect]
     Indication: BIPOLAR DISORDER
     Dosage: 7AM + 11 AM

REACTIONS (1)
  - UNEVALUABLE EVENT [None]
